FAERS Safety Report 21948042 (Version 1)
Quarter: 2023Q1

REPORT INFORMATION
  Report Type: Spontaneous
  Country: DE (occurrence: None)
  Receive Date: 20230203
  Receipt Date: 20230203
  Transmission Date: 20230417
  Serious: Yes (Other)
  Sender: FDA-Public Use
  Company Number: DE-ROCHE-3267529

PATIENT
  Age: 62 Year
  Sex: Female

DRUGS (3)
  1. ROZLYTREK [Suspect]
     Active Substance: ENTRECTINIB
     Indication: Phyllodes tumour
     Route: 065
     Dates: start: 20230117
  2. ROZLYTREK [Suspect]
     Active Substance: ENTRECTINIB
     Indication: Sarcoma
  3. TRAMADOL LONG [Concomitant]
     Indication: Pain
     Dates: end: 20230120

REACTIONS (11)
  - Off label use [Unknown]
  - Fall [Unknown]
  - Loss of consciousness [Unknown]
  - Head injury [Unknown]
  - Dizziness [Recovered/Resolved]
  - Feeling cold [Unknown]
  - Confusional state [Not Recovered/Not Resolved]
  - Restless legs syndrome [Not Recovered/Not Resolved]
  - Insomnia [Not Recovered/Not Resolved]
  - Tremor [Unknown]
  - Muscular weakness [Unknown]

NARRATIVE: CASE EVENT DATE: 20230118
